FAERS Safety Report 9498474 (Version 1)
Quarter: 2013Q3

REPORT INFORMATION
  Report Type: Report from Study
  Country: CA (occurrence: CA)
  Receive Date: 20130904
  Receipt Date: 20130904
  Transmission Date: 20140515
  Serious: Yes (Other)
  Sender: FDA-Public Use
  Company Number: CA-JNJFOC-20130900061

PATIENT
  Age: 30 Year
  Sex: Male
  Weight: 68.04 kg

DRUGS (1)
  1. REMICADE [Suspect]
     Indication: COLITIS ULCERATIVE
     Route: 042
     Dates: end: 201305

REACTIONS (3)
  - Loss of consciousness [Unknown]
  - Infusion related reaction [Unknown]
  - Rash [Unknown]
